FAERS Safety Report 8221282-4 (Version None)
Quarter: 2012Q1

REPORT INFORMATION
  Report Type: 
  Country: None (occurrence: None)
  Receive Date: 20120316
  Receipt Date: 20120301
  Transmission Date: 20120608
  Serious: Yes (Disabling)
  Sender: FDA-Public Use
  Company Number: JPI-P-020096

PATIENT
  Age: 39 Year
  Sex: Male

DRUGS (2)
  1. XYREM [Suspect]
     Indication: FIBROMYALGIA
     Dosage: 6;9 GM (3;4.5 GM, 2 IN 1 D), ORAL
     Route: 048
     Dates: start: 20111215
  2. XYREM [Suspect]
     Indication: FIBROMYALGIA
     Dosage: 6;9 GM (3;4.5 GM, 2 IN 1 D), ORAL
     Route: 048
     Dates: start: 20110629

REACTIONS (8)
  - DRUG INEFFECTIVE [None]
  - INITIAL INSOMNIA [None]
  - BACK PAIN [None]
  - EYE DISCHARGE [None]
  - CONDITION AGGRAVATED [None]
  - CHRONIC FATIGUE SYNDROME [None]
  - FIBROMYALGIA [None]
  - HYPERHIDROSIS [None]
